FAERS Safety Report 4424118-2 (Version None)
Quarter: 2004Q3

REPORT INFORMATION
  Report Type: 
  Country: None (occurrence: None)
  Receive Date: 20040809
  Receipt Date: 20040722
  Transmission Date: 20050211
  Serious: No
  Sender: FDA-Public Use
  Company Number: ST-2004-007929

PATIENT
  Age: 74 Year
  Sex: Female

DRUGS (4)
  1. OLMETEC [Suspect]
     Indication: HYPERTENSION
     Dosage: 10 MG QD PO
     Route: 048
     Dates: start: 20040607, end: 20040705
  2. THYRADIN [Concomitant]
  3. NATRIX [Concomitant]
  4. DIOVAN [Concomitant]

REACTIONS (2)
  - ARRHYTHMIA [None]
  - CHEST DISCOMFORT [None]
